FAERS Safety Report 6171817-0 (Version None)
Quarter: 2009Q2

REPORT INFORMATION
  Report Type: 
  Country: None (occurrence: None)
  Receive Date: 20090429
  Receipt Date: 20090422
  Transmission Date: 20091009
  Serious: Yes (Death)
  Sender: FDA-Public Use
  Company Number: FR-ROCHE-628996

PATIENT
  Sex: Male

DRUGS (8)
  1. ROCEPHIN [Suspect]
     Indication: URINARY TRACT INFECTION
     Dosage: SWITCHED TO BACTRIM
     Route: 042
     Dates: start: 20090201, end: 20090406
  2. BACTRIM [Suspect]
     Indication: URINARY TRACT INFECTION
     Route: 065
     Dates: start: 20090407
  3. INIPOMP [Suspect]
     Indication: GASTRITIS
     Route: 048
     Dates: start: 20090219
  4. COLCHIMAX [Suspect]
     Indication: GOUT
     Route: 048
     Dates: start: 20090316
  5. COLCHIMAX [Suspect]
     Dosage: DOSE: 2 X 2 TABLETS
     Route: 048
  6. COLCHIMAX [Suspect]
     Route: 048
     Dates: end: 20090328
  7. COLCHIMAX [Suspect]
     Route: 048
     Dates: end: 20090402
  8. SPASFON [Suspect]
     Indication: DRUG USE FOR UNKNOWN INDICATION
     Dosage: UNCHANGED DOSE
     Route: 048
     Dates: start: 20090201

REACTIONS (7)
  - BLOOD SODIUM DECREASED [None]
  - CULTURE STOOL POSITIVE [None]
  - DIARRHOEA [None]
  - HAEMOGLOBIN DECREASED [None]
  - LEUKOPENIA [None]
  - PLATELET COUNT DECREASED [None]
  - SEPTIC SHOCK [None]
